FAERS Safety Report 9095682 (Version 1)
Quarter: 2013Q1

REPORT INFORMATION
  Report Type: Spontaneous
  Country: DK (occurrence: None)
  Receive Date: 20130123
  Receipt Date: 20130123
  Transmission Date: 20140127
  Serious: Yes (Other)
  Sender: FDA-Public Use
  Company Number: 2013MA000528

PATIENT
  Age: 29 Year
  Sex: Female

DRUGS (3)
  1. FEVERELL (ACETAMINOPHEN RECTAL SUPPOSITORIES) 650 MG (ALPHARMA) (PARACETAMOL) [Suspect]
     Route: 048
     Dates: start: 20130104, end: 20130107
  2. LORMETAZEPAM [Suspect]
     Route: 048
     Dates: start: 20130104, end: 20130107
  3. IBUPROFEN ORAL SUSPENSION USP, 100 MG/5 ML (RX) (ALPHARMA) (IBUPROFEN) [Suspect]
     Route: 048
     Dates: start: 20130107, end: 20130107

REACTIONS (9)
  - Toxicity to various agents [None]
  - Sopor [None]
  - Visual impairment [None]
  - Overdose [None]
  - Confusional state [None]
  - Somnolence [None]
  - Refusal of treatment by patient [None]
  - Anxiety [None]
  - Psychiatric symptom [None]
